FAERS Safety Report 5700858-X (Version None)
Quarter: 2008Q2

REPORT INFORMATION
  Report Type: 
  Country: None (occurrence: None)
  Receive Date: 20080410
  Receipt Date: 20080404
  Transmission Date: 20081010
  Serious: Yes (Death, Hospitalization)
  Sender: FDA-Public Use
  Company Number: FR-WYE-H02335908

PATIENT
  Age: 86 Year
  Sex: Female

DRUGS (10)
  1. INIPOMP [Suspect]
     Dosage: ^1 DF^
     Route: 048
     Dates: start: 20070911, end: 20071020
  2. TAVANIC [Suspect]
     Indication: ENDOCARDITIS
     Route: 048
     Dates: start: 20070717, end: 20071019
  3. DI-ANTALVIC [Suspect]
     Indication: PAIN
     Dosage: ^DF^
     Route: 048
     Dates: start: 20071003, end: 20071020
  4. PREVISCAN [Concomitant]
     Route: 048
     Dates: start: 20071003, end: 20071022
  5. LASILIX [Suspect]
     Dosage: ^DF^
     Route: 048
     Dates: start: 20070920, end: 20071020
  6. CARDENSIEL [Concomitant]
     Indication: ARRHYTHMIA
     Route: 048
     Dates: start: 20071003, end: 20071022
  7. DIGOXIN [Concomitant]
     Route: 048
     Dates: start: 20071003, end: 20071022
  8. TARGOCID [Suspect]
     Indication: ARTHRITIS INFECTIVE
     Route: 042
     Dates: start: 20070720, end: 20071019
  9. TARGOCID [Suspect]
     Indication: ENDOCARDITIS
  10. ZOLOFT [Suspect]
     Dosage: ^DF^
     Route: 048
     Dates: end: 20071019

REACTIONS (2)
  - AGRANULOCYTOSIS [None]
  - FEBRILE NEUTROPENIA [None]
